FAERS Safety Report 12189924 (Version 1)
Quarter: 2016Q1

REPORT INFORMATION
  Report Type: Spontaneous
  Country: None (occurrence: None)
  Receive Date: 20160317
  Receipt Date: 20160317
  Transmission Date: 20160526
  Serious: Yes (Death, Life-Threatening, Hospitalization)
  Sender: FDA-Public Use
  Company Number: None

PATIENT
  Age: 69 Year
  Sex: Female
  Weight: 108 kg

DRUGS (1)
  1. APIXABAN [Suspect]
     Active Substance: APIXABAN
     Indication: ATRIAL FIBRILLATION
     Route: 048

REACTIONS (6)
  - Acute kidney injury [None]
  - Respiratory failure [None]
  - Sepsis [None]
  - Refusal of treatment by relative [None]
  - Cardiac tamponade [None]
  - Dialysis [None]

NARRATIVE: CASE EVENT DATE: 20160121
